FAERS Safety Report 6760419-0 (Version None)
Quarter: 2010Q2

REPORT INFORMATION
  Report Type: 
  Country: None (occurrence: None)
  Receive Date: 20100608
  Receipt Date: 20100526
  Transmission Date: 20101027
  Serious: Yes (Hospitalization, Other)
  Sender: FDA-Public Use
  Company Number: PHHY2010JP32787

PATIENT
  Sex: Male
  Weight: 75 kg

DRUGS (3)
  1. VOLTAREN [Suspect]
     Indication: PYREXIA
     Dosage: 25 MG, ONCE/SINGLE
     Route: 054
     Dates: start: 20100329, end: 20100329
  2. DIOVAN [Concomitant]
     Indication: HYPERTENSION
     Dosage: 80 MG
     Route: 048
  3. BEZATOL - SLOW RELEASE [Concomitant]
     Indication: HYPERLIPIDAEMIA
     Dosage: 400 MG
     Route: 048

REACTIONS (8)
  - BLOOD LACTATE DEHYDROGENASE INCREASED [None]
  - DIALYSIS [None]
  - HAEMOGLOBIN DECREASED [None]
  - MALAISE [None]
  - PLATELET COUNT INCREASED [None]
  - PYREXIA [None]
  - RED BLOOD CELL COUNT DECREASED [None]
  - TUBULOINTERSTITIAL NEPHRITIS [None]
